FAERS Safety Report 18573981 (Version 1)
Quarter: 2020Q4

REPORT INFORMATION
  Report Type: Spontaneous
  Country: US (occurrence: US)
  Receive Date: 20201203
  Receipt Date: 20201203
  Transmission Date: 20210114
  Serious: No
  Sender: FDA-Public Use
  Company Number: US-MYLANLABS-2020M1097693

PATIENT
  Sex: Male

DRUGS (1)
  1. RIVASTIGMINE TRANSDERMAL SYSTEM [Suspect]
     Active Substance: RIVASTIGMINE
     Indication: PARKINSON^S DISEASE
     Dosage: UNK UNK, QD,1, 4.6 MG/24 HRS
     Route: 062

REACTIONS (2)
  - Wrong technique in product usage process [Not Recovered/Not Resolved]
  - Application site rash [Not Recovered/Not Resolved]
